FAERS Safety Report 6980239-1 (Version None)
Quarter: 2010Q3

REPORT INFORMATION
  Report Type: 
  Country: None (occurrence: None)
  Receive Date: 20100914
  Receipt Date: 20100906
  Transmission Date: 20110219
  Serious: Yes (Other)
  Sender: FDA-Public Use
  Company Number: JP-BRISTOL-MYERS SQUIBB COMPANY-15274756

PATIENT
  Age: 5 Decade
  Sex: Female

DRUGS (4)
  1. BRIPLATIN [Suspect]
     Indication: ENDOMETRIAL SARCOMA
     Route: 041
  2. IFOMIDE [Suspect]
     Indication: ENDOMETRIAL SARCOMA
     Dosage: 1000MG/BODY, INJ
  3. UROMITEXAN [Suspect]
     Indication: ENDOMETRIAL SARCOMA
  4. ADRIACIN [Suspect]
     Indication: ENDOMETRIAL SARCOMA
     Dosage: 1 DOSAGE FORM=60MG/40MG/M2

REACTIONS (2)
  - BONE MARROW FAILURE [None]
  - PELVIC ABSCESS [None]
